FAERS Safety Report 6834318-X (Version None)
Quarter: 2010Q3

REPORT INFORMATION
  Report Type: 
  Country: None (occurrence: None)
  Receive Date: 20100712
  Receipt Date: 20070418
  Transmission Date: 20110219
  Serious: Yes (Other)
  Sender: FDA-Public Use
  Company Number: US-PFIZER INC-2007032305

PATIENT
  Sex: Male
  Weight: 90.909 kg

DRUGS (4)
  1. CHANTIX [Suspect]
     Indication: SMOKING CESSATION THERAPY
     Dates: start: 20070414
  2. ANTIHISTAMINES [Suspect]
  3. TYLENOL (CAPLET) [Concomitant]
  4. NAPROXEN [Concomitant]

REACTIONS (4)
  - DISTURBANCE IN ATTENTION [None]
  - DRUG INEFFECTIVE [None]
  - NERVOUSNESS [None]
  - SOMNOLENCE [None]
